FAERS Safety Report 9415173 (Version 1)
Quarter: 2013Q3

REPORT INFORMATION
  Report Type: Spontaneous
  Country: CH (occurrence: CH)
  Receive Date: 20130723
  Receipt Date: 20130723
  Transmission Date: 20140515
  Serious: Yes (Hospitalization)
  Sender: FDA-Public Use
  Company Number: CH-GALDERMA-CH12415760

PATIENT
  Sex: Female

DRUGS (1)
  1. ORACEA [Suspect]
     Indication: ROSACEA
     Dosage: UNKNOWN
     Route: 048

REACTIONS (1)
  - Hypertension [Unknown]
